FAERS Safety Report 10878001 (Version 1)
Quarter: 2015Q1

REPORT INFORMATION
  Report Type: Spontaneous
  Country: US (occurrence: US)
  Receive Date: 20150302
  Receipt Date: 20150302
  Transmission Date: 20150721
  Serious: No
  Sender: FDA-Public Use
  Company Number: US-ABBVIE-14P-163-1302403-00

PATIENT
  Sex: Male
  Weight: 80.81 kg

DRUGS (1)
  1. ANDROGEL [Suspect]
     Active Substance: TESTOSTERONE
     Indication: BLOOD TESTOSTERONE DECREASED
     Dosage: 2 PUMP ACTUATIONS
     Route: 065
     Dates: start: 2012, end: 2013

REACTIONS (1)
  - Testicular atrophy [Not Recovered/Not Resolved]

NARRATIVE: CASE EVENT DATE: 2012
